FAERS Safety Report 25090056 (Version 1)
Quarter: 2025Q1

REPORT INFORMATION
  Report Type: Spontaneous
  Country: IN (occurrence: IN)
  Receive Date: 20250318
  Receipt Date: 20250318
  Transmission Date: 20250409
  Serious: Yes (Other)
  Sender: ReacX Pharmaceuticals
  Company Number: IN-REACX PHARMACEUTICALS-2025RCX00039

PATIENT
  Age: 31 Year
  Sex: Female

DRUGS (2)
  1. BUPRENORPHINE [Suspect]
     Active Substance: BUPRENORPHINE
     Indication: Spinal anaesthesia
  2. BUPIVACAINE [Suspect]
     Active Substance: BUPIVACAINE
     Indication: Spinal anaesthesia

REACTIONS (4)
  - Parotitis [Recovered/Resolved]
  - Maternal exposure during pregnancy [Recovered/Resolved]
  - Injection [Recovered/Resolved]
  - Off label use [Recovered/Resolved]
